FAERS Safety Report 6335970-8 (Version None)
Quarter: 2009Q3

REPORT INFORMATION
  Report Type: 
  Country: None (occurrence: None)
  Receive Date: 20090831
  Receipt Date: 20090831
  Transmission Date: 20100115
  Serious: Yes (Hospitalization)
  Sender: FDA-Public Use
  Company Number: None

PATIENT
  Sex: Female
  Weight: 77.5651 kg

DRUGS (2)
  1. OMEPRAZOLE [Suspect]
     Indication: ANAEMIA
     Dosage: 20 MG DAILY
     Dates: start: 20090803, end: 20090820
  2. OMEPRAZOLE [Suspect]
     Indication: OESOPHAGITIS
     Dosage: 20 MG DAILY
     Dates: start: 20090803, end: 20090820

REACTIONS (4)
  - ANAEMIA [None]
  - GASTROINTESTINAL HAEMORRHAGE [None]
  - OESOPHAGITIS [None]
  - PRODUCT SUBSTITUTION ISSUE [None]
